FAERS Safety Report 6224351-3 (Version None)
Quarter: 2009Q2

REPORT INFORMATION
  Report Type: 
  Country: None (occurrence: None)
  Receive Date: 20090612
  Receipt Date: 20090316
  Transmission Date: 20091009
  Serious: No
  Sender: FDA-Public Use
  Company Number: US-ABBOTT-09P-163-0563055-00

PATIENT
  Sex: Male
  Weight: 86.26 kg

DRUGS (8)
  1. HUMIRA [Suspect]
     Indication: CROHN'S DISEASE
     Route: 058
     Dates: start: 20090228
  2. NORTRIPTYLINE HCL [Concomitant]
     Indication: NEUROPATHY PERIPHERAL
     Route: 048
  3. OMEPRAZOLE [Concomitant]
     Indication: CROHN'S DISEASE
     Route: 048
  4. VICODIN [Concomitant]
     Indication: CROHN'S DISEASE
     Route: 048
  5. VICODIN [Concomitant]
     Indication: PAIN
  6. MULTI-VITAMIN [Concomitant]
     Indication: VITAMIN SUPPLEMENTATION
     Route: 048
  7. IRON [Concomitant]
     Indication: MINERAL SUPPLEMENTATION
     Route: 048
  8. IRON [Concomitant]
     Indication: ANAEMIA

REACTIONS (1)
  - HAEMATOCHEZIA [None]
